FAERS Safety Report 7510435-6 (Version None)
Quarter: 2011Q2

REPORT INFORMATION
  Report Type: 
  Country: None (occurrence: None)
  Receive Date: 20110527
  Receipt Date: 20110518
  Transmission Date: 20111010
  Serious: Yes (Other)
  Sender: FDA-Public Use
  Company Number: ME-ELI_LILLY_AND_COMPANY-ME201104002364

PATIENT
  Sex: Female
  Weight: 65 kg

DRUGS (4)
  1. KYTRIL [Concomitant]
     Dosage: UNK
     Route: 042
     Dates: start: 20110323
  2. GEMZAR [Suspect]
     Indication: LUNG NEOPLASM MALIGNANT
     Dosage: 1 MG, ON DAY1 AND 8 OF AN UNKNOWN CYCLE
     Route: 042
     Dates: start: 20110323
  3. SODIUM CHLORIDE [Concomitant]
     Dosage: 25 %
     Route: 042
     Dates: start: 20110323
  4. DEXASON [Concomitant]
     Dosage: UNK
     Route: 042
     Dates: start: 20110323

REACTIONS (5)
  - SWOLLEN TONGUE [None]
  - HYPOAESTHESIA ORAL [None]
  - PRURITUS [None]
  - SWELLING FACE [None]
  - LOCAL SWELLING [None]
